FAERS Safety Report 12743392 (Version 2)
Quarter: 2016Q4

REPORT INFORMATION
  Report Type: Spontaneous
  Country: US (occurrence: US)
  Receive Date: 20160914
  Receipt Date: 20161114
  Transmission Date: 20170207
  Serious: No
  Sender: FDA-Public Use
  Company Number: US-CELGENEUS-USA-2016087646

PATIENT
  Age: 33 Year
  Sex: Male
  Weight: 79.45 kg

DRUGS (2)
  1. ADVIL [Concomitant]
     Active Substance: IBUPROFEN
     Indication: PRODUCT USED FOR UNKNOWN INDICATION
     Route: 065
  2. OTEZLA [Suspect]
     Active Substance: APREMILAST
     Indication: PSORIATIC ARTHROPATHY
     Dosage: 60 MILLIGRAM
     Route: 048
     Dates: start: 201607

REACTIONS (6)
  - Blister [Not Recovered/Not Resolved]
  - Local swelling [Not Recovered/Not Resolved]
  - Joint effusion [Recovered/Resolved with Sequelae]
  - Orchitis noninfective [Unknown]
  - Testicular pain [Unknown]
  - Groin pain [Unknown]

NARRATIVE: CASE EVENT DATE: 201608
